FAERS Safety Report 6507175-9 (Version None)
Quarter: 2009Q4

REPORT INFORMATION
  Report Type: 
  Country: None (occurrence: None)
  Receive Date: 20091221
  Receipt Date: 20091210
  Transmission Date: 20100525
  Serious: Yes (Other)
  Sender: FDA-Public Use
  Company Number: PHHY2009CA49657

PATIENT
  Sex: Female

DRUGS (9)
  1. EXELON [Suspect]
     Dosage: UNK
     Route: 062
     Dates: start: 20091028, end: 20091028
  2. NASONEX [Concomitant]
     Dosage: PRN
  3. ASPIRIN [Concomitant]
     Dosage: 81 MG, UNK
  4. FOSAMAX [Concomitant]
     Dosage: 1 DF, QW
  5. LORAZEPAM [Concomitant]
     Dosage: 1 MG, PRN, TWICE DAILY
  6. HYDROCHLOROTHIAZIDE W/RAMIPRIL [Concomitant]
     Dosage: 10/25 DAILY
  7. COLESTID [Concomitant]
     Dosage: 0.5 MG, QW
  8. LACTULOSE [Concomitant]
     Dosage: UNK
  9. CADUET [Concomitant]
     Dosage: 10/10, DAILY

REACTIONS (5)
  - APPLICATION SITE BLEEDING [None]
  - APPLICATION SITE ERYTHEMA [None]
  - APPLICATION SITE PRURITUS [None]
  - APPLICATION SITE REACTION [None]
  - APPLICATION SITE SCAR [None]
